FAERS Safety Report 8997268 (Version 5)
Quarter: 2013Q1

REPORT INFORMATION
  Report Type: Spontaneous
  Country: GB (occurrence: GB)
  Receive Date: 20130104
  Receipt Date: 20130315
  Transmission Date: 20140127
  Serious: Yes (Hospitalization, Disabling)
  Sender: FDA-Public Use
  Company Number: GB-TEVA-378250ISR

PATIENT
  Age: 70 Year
  Sex: Female
  Weight: 56 kg

DRUGS (8)
  1. METRONIDAZOLE [Suspect]
     Indication: SKIN ULCER
     Route: 048
     Dates: start: 20121019
  2. METRONIDAZOLE [Suspect]
     Route: 048
     Dates: start: 20121022
  3. CALCICHEW [Suspect]
     Indication: PRODUCT USED FOR UNKNOWN INDICATION
     Route: 065
  4. GABAPENTIN [Concomitant]
     Indication: SCIATIC NERVE INJURY
     Dosage: 900 MILLIGRAM DAILY;
     Route: 065
     Dates: start: 2007
  5. GABAPENTIN [Concomitant]
     Dosage: 1200 MILLIGRAM DAILY;
     Route: 065
  6. INDAPAMIDE [Concomitant]
     Indication: PRODUCT USED FOR UNKNOWN INDICATION
     Route: 065
  7. ATROVENT [Concomitant]
     Indication: PRODUCT USED FOR UNKNOWN INDICATION
  8. CITALOPRAM [Concomitant]
     Indication: PRODUCT USED FOR UNKNOWN INDICATION
     Route: 065

REACTIONS (12)
  - Paraesthesia [Not Recovered/Not Resolved]
  - Head discomfort [Not Recovered/Not Resolved]
  - Hypertension [Not Recovered/Not Resolved]
  - Musculoskeletal disorder [Not Recovered/Not Resolved]
  - Hypoaesthesia [Not Recovered/Not Resolved]
  - Hearing impaired [Not Recovered/Not Resolved]
  - Pain in extremity [Not Recovered/Not Resolved]
  - Feeling abnormal [Not Recovered/Not Resolved]
  - Drug ineffective [Not Recovered/Not Resolved]
  - Activities of daily living impaired [Not Recovered/Not Resolved]
  - Peripheral coldness [Not Recovered/Not Resolved]
  - Heart rate increased [Not Recovered/Not Resolved]
